FAERS Safety Report 5092126-7 (Version None)
Quarter: 2006Q3

REPORT INFORMATION
  Report Type: 
  Country: None (occurrence: None)
  Receive Date: 20060828
  Receipt Date: 20060828
  Transmission Date: 20061208
  Serious: Yes (Hospitalization)
  Sender: FDA-Public Use
  Company Number: None

PATIENT
  Age: 76 Year
  Sex: Female
  Weight: 79.3795 kg

DRUGS (1)
  1. AMBIEN [Suspect]
     Indication: INSOMNIA
     Dosage: PO
     Route: 048
     Dates: start: 20060301, end: 20060819

REACTIONS (8)
  - AGITATION [None]
  - CONFUSIONAL STATE [None]
  - DISORIENTATION [None]
  - DRUG DEPENDENCE [None]
  - MEMORY IMPAIRMENT [None]
  - MENTAL DISORDER [None]
  - NAUSEA [None]
  - PERSONALITY CHANGE [None]
